FAERS Safety Report 4717499-3 (Version None)
Quarter: 2005Q3

REPORT INFORMATION
  Report Type: 
  Country: None (occurrence: None)
  Receive Date: 20050715
  Receipt Date: 20050629
  Transmission Date: 20060218
  Serious: Yes (Hospitalization)
  Sender: FDA-Public Use
  Company Number: 2005BI009764

PATIENT
  Age: 55 Year
  Sex: Male

DRUGS (3)
  1. AVONEX [Suspect]
     Indication: MULTIPLE SCLEROSIS
     Dosage: 30 UG;QW;IM
     Route: 030
     Dates: start: 19961215, end: 20041101
  2. NATALIZUMAB [Suspect]
     Indication: MULTIPLE SCLEROSIS
     Dosage: 300 MG;QM;IV
     Route: 042
     Dates: start: 20041222, end: 20050101
  3. AVONEX [Suspect]
     Indication: MULTIPLE SCLEROSIS
     Dosage: 30 UG;QW;IM
     Route: 030
     Dates: start: 20050228

REACTIONS (6)
  - BALANCE DISORDER [None]
  - FALL [None]
  - HALLUCINATION, VISUAL [None]
  - MULTIPLE SCLEROSIS RELAPSE [None]
  - PROGRESSIVE MULTIPLE SCLEROSIS [None]
  - RIB FRACTURE [None]
